FAERS Safety Report 4682822-5 (Version None)
Quarter: 2005Q2

REPORT INFORMATION
  Report Type: 
  Country: None (occurrence: None)
  Receive Date: 20050606
  Receipt Date: 20050601
  Transmission Date: 20051028
  Serious: Yes (Death)
  Sender: FDA-Public Use
  Company Number: 2005UW08363

PATIENT
  Age: 71 Year
  Sex: Male

DRUGS (4)
  1. TOPROL-XL [Suspect]
     Route: 048
     Dates: end: 20040501
  2. CELEXA [Suspect]
     Indication: DEPRESSION
     Dates: start: 20040501, end: 20040501
  3. DARVON [Suspect]
     Dates: end: 20040501
  4. AMBIEN [Suspect]
     Indication: INSOMNIA
     Dates: end: 20040501

REACTIONS (4)
  - COMPLETED SUICIDE [None]
  - DRUG TOXICITY [None]
  - INTENTIONAL MISUSE [None]
  - OVERDOSE [None]
